FAERS Safety Report 5933750-6 (Version None)
Quarter: 2008Q4

REPORT INFORMATION
  Report Type: 
  Country: None (occurrence: None)
  Receive Date: 20081024
  Receipt Date: 20081013
  Transmission Date: 20090506
  Serious: Yes (Other)
  Sender: FDA-Public Use
  Company Number: 2008-GWUS-0801

PATIENT
  Sex: Female
  Weight: 2.02 kg

DRUGS (1)
  1. TAMBOCOR [Suspect]
     Indication: TACHYCARDIA FOETAL
     Dosage: 300 MG - QD - MATERNAL ORAL DOSE
     Route: 048

REACTIONS (2)
  - CAESAREAN SECTION [None]
  - MATERNAL DRUGS AFFECTING FOETUS [None]
